FAERS Safety Report 6396761-5 (Version None)
Quarter: 2009Q4

REPORT INFORMATION
  Report Type: 
  Country: None (occurrence: None)
  Receive Date: 20091012
  Receipt Date: 20090520
  Transmission Date: 20100525
  Serious: No
  Sender: FDA-Public Use
  Company Number: US-ASTRAZENECA-2009UW13138

PATIENT
  Age: 52 Year
  Sex: Female
  Weight: 113.4 kg

DRUGS (4)
  1. SYMBICORT [Suspect]
     Indication: ASTHMA
     Route: 055
     Dates: start: 20090401
  2. FLOVENT [Concomitant]
  3. SINGULAIR [Concomitant]
     Indication: ASTHMA
  4. ALBUTEROL [Concomitant]

REACTIONS (1)
  - DYSPNOEA [None]
